FAERS Safety Report 6240347-X (Version None)
Quarter: 2009Q2

REPORT INFORMATION
  Report Type: 
  Country: None (occurrence: None)
  Receive Date: 20090623
  Receipt Date: 20080812
  Transmission Date: 20091009
  Serious: No
  Sender: FDA-Public Use
  Company Number: US-ASTRAZENECA-2008UW16517

PATIENT
  Age: 60 Year
  Sex: Male
  Weight: 83.9 kg

DRUGS (4)
  1. PULMICORT RESPULES [Suspect]
     Indication: CHRONIC OBSTRUCTIVE PULMONARY DISEASE
     Dosage: 1 MG 3 TO 4 TIMES A DAY
     Route: 055
     Dates: start: 20080201, end: 20080801
  2. PULMICORT RESPULES [Suspect]
     Dosage: 1/2 OF THE 1 MG TWICE A DAY
     Route: 055
  3. ADVAIR HFA [Concomitant]
  4. SPIRIVA [Concomitant]

REACTIONS (2)
  - DRY THROAT [None]
  - PHARYNGEAL OEDEMA [None]
